FAERS Safety Report 5331020-0 (Version None)
Quarter: 2007Q2

REPORT INFORMATION
  Report Type: 
  Country: None (occurrence: None)
  Receive Date: 20070522
  Receipt Date: 20070510
  Transmission Date: 20071010
  Serious: Yes (Other)
  Sender: FDA-Public Use
  Company Number: US-ROCHE-497043

PATIENT
  Age: 52 Year
  Sex: Female

DRUGS (23)
  1. BONIVA [Suspect]
     Indication: OSTEOPOROSIS
     Dosage: DOSAGE REPORTED AS 3 MG/ML EVERY THREE MONTHS
     Route: 042
     Dates: start: 20070201
  2. SPIRONOLACTONE [Concomitant]
  3. VALIUM [Concomitant]
  4. ZANAFLEX [Concomitant]
  5. SYNTHROID [Concomitant]
  6. GUIATEX [Concomitant]
     Dosage: REPORTED AS GUIATEX TSE
  7. PLAQUENIL [Concomitant]
  8. PROZAC [Concomitant]
  9. ULTRAM [Concomitant]
  10. MOBIC [Concomitant]
  11. NASACORT [Concomitant]
  12. NEURONTIN [Concomitant]
  13. PROTONIX [Concomitant]
  14. SALAGEN [Concomitant]
  15. OXYTROL [Concomitant]
  16. MAXALT [Concomitant]
  17. ESTRACE [Concomitant]
  18. VITAMIN [Concomitant]
     Dosage: REPORTED AS VITAMIN D
  19. TYLENOL [Concomitant]
     Dosage: TAKEN AS NEEDED
  20. MAGNESIUM SULFATE [Concomitant]
     Dosage: REPORTED AS MAGNESIUM MALEATE
  21. MANGANESE [Concomitant]
  22. CALCIUM CHLORIDE [Concomitant]
     Dosage: REPORTED AS CALCIUM WITH VITAMIN D
  23. ACIDOPHILUS [Concomitant]

REACTIONS (8)
  - ANAPHYLACTIC REACTION [None]
  - ANXIETY [None]
  - DYSPNOEA [None]
  - HYPERHIDROSIS [None]
  - HYPOTENSION [None]
  - LARYNGOSPASM [None]
  - RESPIRATORY DISORDER [None]
  - SKIN DISCOLOURATION [None]
